FAERS Safety Report 7530409-9 (Version None)
Quarter: 2011Q2

REPORT INFORMATION
  Report Type: 
  Country: None (occurrence: None)
  Receive Date: 20110607
  Receipt Date: 20110525
  Transmission Date: 20111010
  Serious: Yes (Hospitalization)
  Sender: FDA-Public Use
  Company Number: DE-ELI_LILLY_AND_COMPANY-DE201106001103

PATIENT
  Sex: Female

DRUGS (3)
  1. SEROQUEL [Concomitant]
     Indication: DEPRESSION
     Dosage: 25 MG, QD
     Route: 064
     Dates: start: 20100830, end: 20101021
  2. CYMBALTA [Suspect]
     Indication: DEPRESSION
     Dosage: 30 MG, BID
     Route: 064
     Dates: start: 20100115, end: 20101021
  3. MIRTAZAPINE [Concomitant]
     Indication: DEPRESSION
     Dosage: 3.75 MG, BID
     Route: 064
     Dates: start: 20100506, end: 20100830

REACTIONS (2)
  - NEONATAL ASPIRATION [None]
  - DRUG EXPOSURE DURING PREGNANCY [None]
